FAERS Safety Report 9013856 (Version 1)
Quarter: 2013Q1

REPORT INFORMATION
  Report Type: Spontaneous
  Country: US (occurrence: None)
  Receive Date: 20130108
  Receipt Date: 20130108
  Transmission Date: 20140127
  Serious: Yes (Other)
  Sender: FDA-Public Use
  Company Number: None

PATIENT
  Age: 33 Year
  Sex: Female
  Weight: 126.1 kg

DRUGS (1)
  1. SYLATRON, 888 MCG, SHARING CORPORATION MERCK [Suspect]

REACTIONS (1)
  - Drug label confusion [None]
